FAERS Safety Report 6758158-5 (Version None)
Quarter: 2010Q2

REPORT INFORMATION
  Report Type: 
  Country: None (occurrence: None)
  Receive Date: 20100603
  Receipt Date: 20100526
  Transmission Date: 20101027
  Serious: Yes (Death)
  Sender: FDA-Public Use
  Company Number: ESP-LIT-2010001

PATIENT
  Age: 16 Year
  Sex: Male

DRUGS (3)
  1. CARBAGLU [Suspect]
     Indication: HYPERAMMONAEMIA
     Dosage: 500 MG EVERY DAY INTRAVENOUS (NOS)
     Route: 042
  2. - -SODIUM BENZOATE [Concomitant]
  3. L-CARNITINE [Concomitant]

REACTIONS (21)
  - ADRENAL INSUFFICIENCY [None]
  - ALANINE AMINOTRANSFERASE INCREASED [None]
  - AMMONIA INCREASED [None]
  - ASPARTATE AMINOTRANSFERASE INCREASED [None]
  - ASTHENIA [None]
  - BLOOD BILIRUBIN INCREASED [None]
  - BLOOD GLUCOSE INCREASED [None]
  - BLOOD LACTATE DEHYDROGENASE INCREASED [None]
  - BRAIN DEATH [None]
  - BRAIN OEDEMA [None]
  - COMA [None]
  - DECREASED APPETITE [None]
  - DISORIENTATION [None]
  - DIZZINESS [None]
  - HALLUCINATION [None]
  - HYPERAMMONAEMIA [None]
  - HYPERBILIRUBINAEMIA [None]
  - HYPOTENSION [None]
  - JAUNDICE [None]
  - PSYCHOMOTOR HYPERACTIVITY [None]
  - RENAL FAILURE [None]
